FAERS Safety Report 21930224 (Version 1)
Quarter: 2023Q1

REPORT INFORMATION
  Report Type: Spontaneous
  Country: US (occurrence: None)
  Receive Date: 20230130
  Receipt Date: 20230130
  Transmission Date: 20230418
  Serious: Yes (Hospitalization)
  Sender: FDA-Public Use
  Company Number: None

PATIENT
  Age: 58 Year
  Sex: Female

DRUGS (1)
  1. CAPECITABINE [Suspect]
     Active Substance: CAPECITABINE
     Dosage: FREQUENCY : TWICE A DAY;?TAKING MEDICATION FOR 1 WEEK ON, 1 WEEK OFF; ?ON HER OFF WEEK
     Route: 048

REACTIONS (5)
  - Diarrhoea [None]
  - Constipation [None]
  - Seizure [None]
  - Off label use [None]
  - Mental impairment [None]

NARRATIVE: CASE EVENT DATE: 20230130
